FAERS Safety Report 5207449-8 (Version None)
Quarter: 2006Q4

REPORT INFORMATION
  Report Type: 
  Country: None (occurrence: None)
  Receive Date: 20061027
  Receipt Date: 20060627
  Transmission Date: 20070319
  Serious: Yes (Other)
  Sender: FDA-Public Use
  Company Number: HQWYE452828JUN06

PATIENT
  Sex: Female

DRUGS (2)
  1. PREMARIN [Suspect]
  2. CYCRIN [Suspect]

REACTIONS (1)
  - BREAST CANCER [None]
